FAERS Safety Report 13178949 (Version 1)
Quarter: 2017Q1

REPORT INFORMATION
  Report Type: Spontaneous
  Country: US (occurrence: US)
  Receive Date: 20170201
  Receipt Date: 20170201
  Transmission Date: 20170428
  Serious: No
  Sender: FDA-Public Use
  Company Number: None

PATIENT
  Age: 57 Year
  Sex: Female
  Weight: 121.5 kg

DRUGS (1)
  1. TUBERSOL [Suspect]
     Active Substance: TUBERCULIN PURIFIED PROTEIN DERIVATIVE
     Indication: INVESTIGATION
     Dosage: ?          OTHER FREQUENCY:ONE TIME;?
     Route: 023
     Dates: start: 20170130

REACTIONS (3)
  - Pyrexia [None]
  - Chills [None]
  - Pain [None]

NARRATIVE: CASE EVENT DATE: 20170130
